FAERS Safety Report 8736547 (Version 3)
Quarter: 2015Q3

REPORT INFORMATION
  Report Type: Spontaneous
  Country: US (occurrence: US)
  Receive Date: 20120822
  Receipt Date: 20150707
  Transmission Date: 20151125
  Serious: Yes (Hospitalization)
  Sender: FDA-Public Use
  Company Number: US-BAYER-2012-083891

PATIENT
  Age: 39 Year
  Sex: Female
  Weight: 83.3 kg

DRUGS (13)
  1. YAZ [Suspect]
     Active Substance: DROSPIRENONE\ETHINYL ESTRADIOL
     Indication: ACNE
     Dosage: UNK
     Dates: start: 20100129, end: 20100607
  2. YAZ [Suspect]
     Active Substance: DROSPIRENONE\ETHINYL ESTRADIOL
     Indication: MENOMETRORRHAGIA
  3. COLACE [Concomitant]
     Active Substance: DOCUSATE SODIUM
     Dosage: UNK
  4. AMBIEN [Concomitant]
     Active Substance: ZOLPIDEM TARTRATE
     Dosage: UNK
  5. ZOLOFT [Concomitant]
     Active Substance: SERTRALINE HYDROCHLORIDE
     Dosage: 50 MG, AT NIGHT
     Route: 048
     Dates: start: 20040816, end: 20101022
  6. NORMODYNE [Concomitant]
     Active Substance: LABETALOL HYDROCHLORIDE
     Dosage: UNK
  7. CATAPRES [Concomitant]
     Active Substance: CLONIDINE HYDROCHLORIDE
     Dosage: UNK
  8. ATIVAN [Concomitant]
     Active Substance: LORAZEPAM
     Dosage: UNK
  9. VASOTEC [Concomitant]
     Active Substance: ENALAPRIL MALEATE
     Dosage: UNK
  10. GIANVI [Suspect]
     Active Substance: DROSPIRENONE\ETHINYL ESTRADIOL
     Indication: MENOMETRORRHAGIA
  11. ZOFRAN [Concomitant]
     Active Substance: ONDANSETRON HYDROCHLORIDE
     Dosage: UNK
  12. GIANVI [Suspect]
     Active Substance: DROSPIRENONE\ETHINYL ESTRADIOL
     Indication: ACNE
     Dosage: UNK
     Dates: start: 20100107, end: 20101020
  13. OXYCODONE [Concomitant]
     Active Substance: OXYCODONE
     Dosage: UNK

REACTIONS (8)
  - Off label use [None]
  - Deep vein thrombosis [None]
  - Pulmonary infarction [None]
  - Chest pain [None]
  - Dyspnoea [None]
  - Pulmonary embolism [None]
  - Injury [None]
  - Pain [None]

NARRATIVE: CASE EVENT DATE: 20101020
